FAERS Safety Report 18336379 (Version 1)
Quarter: 2020Q4

REPORT INFORMATION
  Report Type: Spontaneous
  Country: IT (occurrence: IT)
  Receive Date: 20201001
  Receipt Date: 20201001
  Transmission Date: 20210113
  Serious: Yes (Hospitalization)
  Sender: FDA-Public Use
  Company Number: IT-ENDO PHARMACEUTICALS INC-2020-006411

PATIENT
  Age: 73 Year
  Sex: Female

DRUGS (1)
  1. QUETIAPINE FUMARATE. [Suspect]
     Active Substance: QUETIAPINE FUMARATE
     Indication: PRODUCT USED FOR UNKNOWN INDICATION
     Dosage: 120 DF, SINGLE
     Route: 048

REACTIONS (5)
  - Coma [Unknown]
  - Electrocardiogram QT prolonged [Unknown]
  - Gastric perforation [Unknown]
  - Bezoar [Recovered/Resolved]
  - Toxicity to various agents [Recovered/Resolved]
